FAERS Safety Report 18677307 (Version 4)
Quarter: 2021Q2

REPORT INFORMATION
  Report Type: Report from Study
  Country: GB (occurrence: GB)
  Receive Date: 20201229
  Receipt Date: 20210504
  Transmission Date: 20210717
  Serious: Yes (Hospitalization, Other)
  Sender: FDA-Public Use
  Company Number: GB-BRISTOL-MYERS SQUIBB COMPANY-BMS-2020-110609

PATIENT
  Age: 52 Year
  Sex: Female

DRUGS (3)
  1. CARBOMER [Concomitant]
     Active Substance: CARBOMER
     Indication: KERATOPLASTY
     Dosage: UNK, PRN
     Route: 047
     Dates: start: 201801
  2. ABATACEPT [Suspect]
     Active Substance: ABATACEPT
     Indication: RHEUMATOID ARTHRITIS
     Dosage: 125 MILLIGRAM, QWK
     Route: 058
     Dates: start: 2020, end: 20201221
  3. CARMELLOSE [Concomitant]
     Active Substance: CARBOXYMETHYLCELLULOSE
     Indication: KERATOPLASTY
     Dosage: UNK UNK, PRN
     Route: 047
     Dates: start: 201801

REACTIONS (12)
  - Chest discomfort [Unknown]
  - Vision blurred [Unknown]
  - Muscle tightness [Unknown]
  - Photosensitivity reaction [Unknown]
  - Corneal graft rejection [Recovered/Resolved]
  - Headache [Unknown]
  - Chest pain [Unknown]
  - Nausea [Unknown]
  - Illness [Unknown]
  - Pain in extremity [Unknown]
  - Palpitations [Unknown]
  - Parosmia [Unknown]

NARRATIVE: CASE EVENT DATE: 202011
